FAERS Safety Report 15655598 (Version 1)
Quarter: 2018Q4

REPORT INFORMATION
  Report Type: Spontaneous
  Country: US (occurrence: US)
  Receive Date: 20181114
  Receipt Date: 20181114
  Transmission Date: 20190205
  Serious: No
  Sender: FDA-Public Use
  Company Number: None

PATIENT
  Age: 23 Year
  Sex: Male

DRUGS (1)
  1. GENVOYA [Suspect]
     Active Substance: COBICISTAT\ELVITEGRAVIR\EMTRICITABINE\TENOFOVIR ALAFENAMIDE FUMARATE
     Indication: HIV INFECTION
     Dosage: ?          OTHER DOSE:ONE TABLET;?
     Route: 048
     Dates: start: 20180512

REACTIONS (7)
  - Diarrhoea [None]
  - Apathy [None]
  - Mood altered [None]
  - Nasal congestion [None]
  - Rhinorrhoea [None]
  - Intentional self-injury [None]
  - Chills [None]

NARRATIVE: CASE EVENT DATE: 20180910
